FAERS Safety Report 23091254 (Version 4)
Quarter: 2023Q4

REPORT INFORMATION
  Report Type: Report from Study
  Country: AT (occurrence: AT)
  Receive Date: 20231020
  Receipt Date: 20231103
  Transmission Date: 20240110
  Serious: Yes (Hospitalization, Other)
  Sender: FDA-Public Use
  Company Number: AT-PFM-2023-05854

PATIENT
  Sex: Male
  Weight: 61 kg

DRUGS (12)
  1. BRAFTOVI [Suspect]
     Active Substance: ENCORAFENIB
     Indication: Colorectal cancer
     Dosage: 225 MG DAILY
     Route: 048
     Dates: start: 20230607
  2. CETUXIMAB [Suspect]
     Active Substance: CETUXIMAB
     Indication: Colorectal cancer
     Dosage: 200 MG/M2 WEEKLY
     Route: 042
     Dates: start: 20230531
  3. EDOXABAN TOSYLATE [Concomitant]
     Active Substance: EDOXABAN TOSYLATE
     Indication: Prophylaxis
     Dosage: 60 MG DAILY
     Route: 048
     Dates: start: 202202
  4. NOVALGIN [Concomitant]
     Indication: Prophylaxis
     Dosage: 500 MG, PRN
     Route: 048
     Dates: start: 202202
  5. METOCLOPRAMIDE HYDROCHLORIDE [Concomitant]
     Active Substance: METOCLOPRAMIDE HYDROCHLORIDE
     Indication: Prophylaxis
     Dosage: 10.54 MG, PRN
     Route: 048
     Dates: start: 20220623
  6. LACTULOSE [Concomitant]
     Active Substance: LACTULOSE
     Indication: Prophylaxis
     Dosage: 15 ML, PRN
     Route: 048
     Dates: start: 20220623
  7. SCHERIPROCT [CINCHOCAINE HYDROCHLORIDE;CLEMIZOLE UNDECYLENATE;HEXACHLO [Concomitant]
     Indication: Anal fissure
     Dosage: UNK UNK, AS NEEDED
     Route: 054
     Dates: start: 20220623
  8. DIPRODERM [BETAMETHASONE DIPROPIONATE] [Concomitant]
     Indication: Prophylaxis
     Dosage: 1 ML, PRN
     Route: 061
     Dates: start: 20230531
  9. PANTOPRAZOLE SODIUM [Concomitant]
     Active Substance: PANTOPRAZOLE SODIUM
     Indication: Prophylaxis
     Dosage: 40 MG, PRN
     Route: 048
     Dates: start: 20230531
  10. MINOSTAD [Concomitant]
     Indication: Prophylaxis
     Dosage: 50 MG DAILY
     Route: 048
     Dates: start: 20230531
  11. DILTIAZEM [Concomitant]
     Active Substance: DILTIAZEM
     Indication: Anal fissure
     Dosage: 1 ML DAILY
     Route: 054
     Dates: start: 20230726
  12. LASIX [Concomitant]
     Active Substance: FUROSEMIDE
     Indication: Prophylaxis
     Dosage: 40 MG DAILY
     Route: 048
     Dates: start: 20230915, end: 20230917

REACTIONS (4)
  - Gamma-glutamyltransferase increased [Not Recovered/Not Resolved]
  - Blood alkaline phosphatase increased [Recovered/Resolved]
  - Musculoskeletal pain [Not Recovered/Not Resolved]
  - Vertigo [Not Recovered/Not Resolved]

NARRATIVE: CASE EVENT DATE: 20230927
